FAERS Safety Report 16572826 (Version 2)
Quarter: 2019Q3

REPORT INFORMATION
  Report Type: Spontaneous
  Country: US (occurrence: US)
  Receive Date: 20190715
  Receipt Date: 20190912
  Transmission Date: 20191004
  Serious: No
  Sender: FDA-Public Use
  Company Number: US-AMGEN-USASP2019110384

PATIENT
  Age: 79 Year
  Sex: Female

DRUGS (13)
  1. PROLIA [Suspect]
     Active Substance: DENOSUMAB
     Indication: OSTEOPENIA
     Dosage: 60 MILLIGRAM, Q6MO
     Route: 065
     Dates: start: 20190515
  2. LISINOPRIL. [Concomitant]
     Active Substance: LISINOPRIL
     Dosage: UNK UNK, QD
  3. VITAMIN D [ERGOCALCIFEROL] [Concomitant]
     Active Substance: ERGOCALCIFEROL
  4. DEPO-MEDROL [Concomitant]
     Active Substance: METHYLPREDNISOLONE ACETATE
     Indication: INTERVERTEBRAL DISC PROTRUSION
  5. DEPO-MEDROL [Concomitant]
     Active Substance: METHYLPREDNISOLONE ACETATE
     Indication: SCIATICA
  6. BUPIVACAINE. [Concomitant]
     Active Substance: BUPIVACAINE
     Indication: INTERVERTEBRAL DISC PROTRUSION
  7. HCTZ [Concomitant]
     Active Substance: HYDROCHLOROTHIAZIDE
     Dosage: UNK UNK, QD
  8. THYROID [Concomitant]
     Active Substance: LEVOTHYROXINE\LIOTHYRONINE
  9. CALCIUM [Concomitant]
     Active Substance: CALCIUM
  10. ZANTAC [Concomitant]
     Active Substance: RANITIDINE HYDROCHLORIDE
     Dosage: UNK UNK, QD
  11. ATORVASTATIN [Concomitant]
     Active Substance: ATORVASTATIN
  12. ATENOLOL. [Concomitant]
     Active Substance: ATENOLOL
  13. BUPIVACAINE. [Concomitant]
     Active Substance: BUPIVACAINE
     Indication: SCIATICA

REACTIONS (20)
  - Throat irritation [Recovered/Resolved]
  - Oral pain [Unknown]
  - Head discomfort [Recovered/Resolved]
  - Off label use [Unknown]
  - Gastrointestinal disorder [Unknown]
  - Bladder disorder [Unknown]
  - Hot flush [Unknown]
  - Balance disorder [Unknown]
  - Oropharyngeal pain [Recovered/Resolved]
  - Headache [Unknown]
  - Dysphagia [Unknown]
  - Pain [Unknown]
  - Neck pain [Unknown]
  - Tooth disorder [Unknown]
  - Lymphadenopathy [Recovered/Resolved]
  - Muscle spasms [Unknown]
  - Mass [Unknown]
  - Fatigue [Unknown]
  - Gingival erythema [Not Recovered/Not Resolved]
  - Gingivitis [Unknown]

NARRATIVE: CASE EVENT DATE: 2019
